FAERS Safety Report 5451108-3 (Version None)
Quarter: 2007Q3

REPORT INFORMATION
  Report Type: 
  Country: None (occurrence: None)
  Receive Date: 20070913
  Receipt Date: 20070910
  Transmission Date: 20080115
  Serious: Yes (Other)
  Sender: FDA-Public Use
  Company Number: FR-BRISTOL-MYERS SQUIBB COMPANY-13905146

PATIENT

DRUGS (2)
  1. IFOSFAMIDE [Suspect]
     Indication: OVARIAN CANCER
  2. DOXORUBICIN HYDROCHLORIDE [Suspect]
     Indication: OVARIAN CANCER

REACTIONS (4)
  - FEBRILE NEUTROPENIA [None]
  - HAEMATOTOXICITY [None]
  - NAUSEA [None]
  - VOMITING [None]
